FAERS Safety Report 6142389-1 (Version None)
Quarter: 2009Q2

REPORT INFORMATION
  Report Type: 
  Country: None (occurrence: None)
  Receive Date: 20090402
  Receipt Date: 20090402
  Transmission Date: 20091009
  Serious: Yes (Other)
  Sender: FDA-Public Use
  Company Number: None

PATIENT
  Age: 51 Year
  Sex: Male
  Weight: 94.3482 kg

DRUGS (4)
  1. FENTANYL-100 [Suspect]
     Indication: BACK PAIN
     Dosage: 100 MCG, 75 MCG Q 2 DAYS TD
     Route: 062
     Dates: start: 20080101
  2. FENTANYL-100 [Suspect]
     Indication: INTERVERTEBRAL DISC DEGENERATION
     Dosage: 100 MCG, 75 MCG Q 2 DAYS TD
     Route: 062
     Dates: start: 20080101
  3. FENTANYL-100 [Suspect]
     Indication: BACK PAIN
     Dosage: 100 MCG, 75 MCG Q 2 DAYS TD
     Route: 062
     Dates: start: 20090101
  4. FENTANYL-100 [Suspect]
     Indication: INTERVERTEBRAL DISC DEGENERATION
     Dosage: 100 MCG, 75 MCG Q 2 DAYS TD
     Route: 062
     Dates: start: 20090101

REACTIONS (4)
  - APPLICATION SITE REACTION [None]
  - DRUG INEFFECTIVE [None]
  - DRY SKIN [None]
  - SKIN EXFOLIATION [None]
